FAERS Safety Report 8099916-7 (Version None)
Quarter: 2012Q1

REPORT INFORMATION
  Report Type: 
  Country: None (occurrence: None)
  Receive Date: 20120129
  Receipt Date: 20111118
  Transmission Date: 20120608
  Serious: No
  Sender: FDA-Public Use
  Company Number: US-ABBOTT-11P-163-0875775-00

PATIENT
  Sex: Female
  Weight: 48.578 kg

DRUGS (6)
  1. MELOXICAM [Concomitant]
     Indication: PSORIATIC ARTHROPATHY
  2. SYNTHROID [Concomitant]
     Indication: HYPOTHYROIDISM
  3. HUMIRA [Suspect]
     Indication: PSORIASIS
     Dosage: TOTAL OF 3 DOSES
     Dates: start: 20111001
  4. MELOXICAM [Concomitant]
     Indication: PSORIASIS
  5. CYTOMEL [Concomitant]
     Indication: HYPOTHYROIDISM
  6. HUMIRA [Suspect]
     Indication: PSORIATIC ARTHROPATHY

REACTIONS (16)
  - ARTHRALGIA [None]
  - HAEMATOCHEZIA [None]
  - JOINT STIFFNESS [None]
  - EPISTAXIS [None]
  - PAIN IN EXTREMITY [None]
  - FLATULENCE [None]
  - TRIGGER FINGER [None]
  - MOBILITY DECREASED [None]
  - FEELING ABNORMAL [None]
  - INJECTION SITE PAIN [None]
  - HAEMORRHAGE [None]
  - INCREASED TENDENCY TO BRUISE [None]
  - FATIGUE [None]
  - MENISCUS LESION [None]
  - ARTHRITIS [None]
  - ANXIETY [None]
